FAERS Safety Report 24087865 (Version 1)
Quarter: 2024Q3

REPORT INFORMATION
  Report Type: Spontaneous
  Country: US (occurrence: US)
  Receive Date: 20240715
  Receipt Date: 20240715
  Transmission Date: 20241017
  Serious: No
  Sender: AMGEN
  Company Number: US-AMGEN-USASP2024136174

PATIENT

DRUGS (4)
  1. REPATHA [Suspect]
     Active Substance: EVOLOCUMAB
     Indication: Product used for unknown indication
     Dosage: UNK
     Route: 065
  2. EZETIMIBE [Concomitant]
     Active Substance: EZETIMIBE
  3. NEXLETOL [Concomitant]
     Active Substance: BEMPEDOIC ACID
  4. LIVALO [Concomitant]
     Active Substance: PITAVASTATIN CALCIUM

REACTIONS (6)
  - Brain fog [Unknown]
  - Dizziness [Unknown]
  - Vision blurred [Unknown]
  - Arthralgia [Unknown]
  - Back pain [Unknown]
  - Myalgia [Unknown]
